FAERS Safety Report 8365420-1 (Version None)
Quarter: 2012Q2

REPORT INFORMATION
  Report Type: 
  Country: None (occurrence: None)
  Receive Date: 20120516
  Receipt Date: 20120503
  Transmission Date: 20120825
  Serious: Yes (Death, Hospitalization)
  Sender: FDA-Public Use
  Company Number: US-ROCHE-1019075

PATIENT
  Sex: Female
  Weight: 37.228 kg

DRUGS (1)
  1. ZELBORAF [Suspect]
     Indication: MALIGNANT MELANOMA
     Route: 048
     Dates: start: 20110902, end: 20111101

REACTIONS (7)
  - NAUSEA [None]
  - ASCITES [None]
  - DYSPHONIA [None]
  - DECREASED APPETITE [None]
  - METASTATIC MALIGNANT MELANOMA [None]
  - FATIGUE [None]
  - VOMITING [None]
